FAERS Safety Report 4815170-0 (Version None)
Quarter: 2005Q4

REPORT INFORMATION
  Report Type: 
  Country: None (occurrence: None)
  Receive Date: 20051028
  Receipt Date: 20051010
  Transmission Date: 20060501
  Serious: Yes (Death, Hospitalization)
  Sender: FDA-Public Use
  Company Number: US-MERCK-0510USA06293

PATIENT
  Age: 65 Year
  Sex: Male

DRUGS (4)
  1. VIOXX [Suspect]
     Indication: ARTHRALGIA
     Route: 048
     Dates: start: 20000201, end: 20000901
  2. VIOXX [Suspect]
     Route: 048
     Dates: start: 20000901
  3. VIOXX [Suspect]
     Route: 048
     Dates: start: 20000201, end: 20000901
  4. VIOXX [Suspect]
     Route: 048
     Dates: start: 20000901

REACTIONS (2)
  - ACUTE MYOCARDIAL INFARCTION [None]
  - DEATH [None]
